FAERS Safety Report 24261308 (Version 1)
Quarter: 2024Q3

REPORT INFORMATION
  Report Type: Spontaneous
  Country: US (occurrence: US)
  Receive Date: 20240829
  Receipt Date: 20240829
  Transmission Date: 20241017
  Serious: No
  Sender: SANOFI AVENTIS
  Company Number: US-SA-SAC20240821001401

PATIENT
  Sex: Female

DRUGS (2)
  1. DUPIXENT [Suspect]
     Active Substance: DUPILUMAB
     Indication: Eczema
     Dosage: 300 MG, QOW
     Route: 058
     Dates: start: 202403
  2. DUPIXENT [Suspect]
     Active Substance: DUPILUMAB
     Indication: Rosacea

REACTIONS (5)
  - Photosensitivity reaction [Unknown]
  - Skin burning sensation [Unknown]
  - Dry eye [Recovered/Resolved]
  - Incorrect dose administered [Unknown]
  - Product use in unapproved indication [Unknown]

NARRATIVE: CASE EVENT DATE: 20240101
